FAERS Safety Report 7222130-1 (Version None)
Quarter: 2011Q1

REPORT INFORMATION
  Report Type: 
  Country: None (occurrence: None)
  Receive Date: 20110112
  Receipt Date: 20110103
  Transmission Date: 20110831
  Serious: Yes (Hospitalization)
  Sender: FDA-Public Use
  Company Number: FR-ASTRAZENECA-2011SE00128

PATIENT
  Age: 22 Month
  Sex: Female

DRUGS (1)
  1. EMLA [Suspect]
     Route: 061

REACTIONS (1)
  - THERMAL BURN [None]
